FAERS Safety Report 8868195 (Version 1)
Quarter: 2012Q4

REPORT INFORMATION
  Report Type: 
  Country: US (occurrence: US)
  Receive Date: 20121025
  Receipt Date: 20121025
  Transmission Date: 20130627
  Serious: No
  Sender: FDA-Public Use
  Company Number: US-AMGEN-USASP2012019203

PATIENT
  Age: 61 Year
  Sex: Female
  Weight: 68.93 kg

DRUGS (7)
  1. ENBREL [Suspect]
     Indication: PRODUCT USED FOR UNKNOWN INDICATION
     Dosage: 50 mg, qwk
  2. TOPROL [Concomitant]
     Dosage: 25 mg, UNK
  3. NEXIUM                             /01479302/ [Concomitant]
     Dosage: 40 mg, UNK
  4. FOLIC ACID [Concomitant]
     Dosage: 1 mg, UNK
  5. LEXAPRO [Concomitant]
     Dosage: 10 mg, UNK
  6. LIPITOR [Concomitant]
     Dosage: 80 mg, UNK
  7. PERCOCET /00867901/ [Concomitant]
     Dosage: UNK

REACTIONS (1)
  - Night sweats [Unknown]
